FAERS Safety Report 5432265-1 (Version None)
Quarter: 2007Q3

REPORT INFORMATION
  Report Type: 
  Country: None (occurrence: None)
  Receive Date: 20070830
  Receipt Date: 20070820
  Transmission Date: 20080115
  Serious: Yes (Death, Other)
  Sender: FDA-Public Use
  Company Number: US-PFIZER INC-2007069734

PATIENT
  Sex: Female

DRUGS (7)
  1. CHANTIX [Suspect]
     Indication: SMOKING CESSATION THERAPY
     Dates: start: 20070731, end: 20070811
  2. REMERON [Concomitant]
  3. KLONOPIN [Concomitant]
  4. ZOFRAN [Concomitant]
  5. NEURONTIN [Concomitant]
  6. LITHIUM CARBONATE [Concomitant]
  7. RISPERDAL [Concomitant]

REACTIONS (3)
  - DEATH [None]
  - HAEMORRHAGE [None]
  - PULMONARY EMBOLISM [None]
